FAERS Safety Report 15422039 (Version 2)
Quarter: 2018Q4

REPORT INFORMATION
  Report Type: Spontaneous
  Country: AT (occurrence: AT)
  Receive Date: 20180924
  Receipt Date: 20181011
  Transmission Date: 20190204
  Serious: Yes (Death, Life-Threatening, Other)
  Sender: FDA-Public Use
  Company Number: AT-009507513-1809AUT009032

PATIENT
  Age: 70 Year
  Sex: Male
  Weight: 93 kg

DRUGS (7)
  1. KEYTRUDA [Suspect]
     Active Substance: PEMBROLIZUMAB
     Dosage: 200 MG, FREQUENCY: 1
     Dates: start: 20180629, end: 20180629
  2. KEPPRA [Concomitant]
     Active Substance: LEVETIRACETAM
     Indication: SEIZURE
  3. LOVENOX [Concomitant]
     Active Substance: ENOXAPARIN SODIUM
     Indication: PULMONARY EMBOLISM
     Dosage: 120 MG DAILY
     Dates: start: 20180705
  4. KEYTRUDA [Suspect]
     Active Substance: PEMBROLIZUMAB
     Indication: NON-SMALL CELL LUNG CANCER
     Dosage: 200 MG, FREQUENCY: 1
     Dates: start: 20180608, end: 20180608
  5. UNASYN (SULTAMICILLIN) [Concomitant]
     Dosage: 9 G DAILY
     Dates: start: 20180705, end: 20180710
  6. KEPPRA [Concomitant]
     Active Substance: LEVETIRACETAM
     Indication: METASTASES TO CENTRAL NERVOUS SYSTEM
     Dosage: 1000 MG DAILY
     Dates: start: 20180706
  7. PANTOLOC [Concomitant]
     Active Substance: PANTOPRAZOLE SODIUM
     Dosage: 40 MG
     Dates: start: 20180705

REACTIONS (4)
  - Pneumonitis [Fatal]
  - Respiratory failure [Fatal]
  - Sepsis [Fatal]
  - Pneumocystis jirovecii pneumonia [Fatal]

NARRATIVE: CASE EVENT DATE: 2018
